FAERS Safety Report 6188619-1 (Version None)
Quarter: 2009Q2

REPORT INFORMATION
  Report Type: 
  Country: None (occurrence: None)
  Receive Date: 20090513
  Receipt Date: 20090506
  Transmission Date: 20091009
  Serious: Yes (Life-Threatening)
  Sender: FDA-Public Use
  Company Number: B0572896A

PATIENT
  Sex: Male

DRUGS (1)
  1. AMOXICILLIN TRIHYDRATE [Suspect]
     Indication: PARONYCHIA
     Dosage: 1UNIT SINGLE DOSE
     Route: 048
     Dates: start: 20090322, end: 20090322

REACTIONS (9)
  - ANAPHYLACTIC SHOCK [None]
  - BLOOD PRESSURE DECREASED [None]
  - GENERALISED ERYTHEMA [None]
  - MALAISE [None]
  - NECK PAIN [None]
  - OXYGEN SATURATION DECREASED [None]
  - PAIN IN EXTREMITY [None]
  - PRURITUS [None]
  - VOMITING [None]
